FAERS Safety Report 18229005 (Version 3)
Quarter: 2022Q2

REPORT INFORMATION
  Report Type: Spontaneous
  Country: US (occurrence: US)
  Receive Date: 20200903
  Receipt Date: 20220412
  Transmission Date: 20220721
  Serious: Yes (Other)
  Sender: FDA-Public Use
  Company Number: US-SAARTEMIS-SAC202008310359

PATIENT
  Age: 65 Year
  Sex: Female

DRUGS (1)
  1. ZANTAC [Suspect]
     Active Substance: RANITIDINE HYDROCHLORIDE
     Indication: Dyspepsia
     Dosage: 150 MG,QD
     Dates: start: 201601, end: 201904

REACTIONS (2)
  - Hepatic cancer stage IV [Recovering/Resolving]
  - Pancreatic carcinoma stage IV [Recovering/Resolving]

NARRATIVE: CASE EVENT DATE: 20191001
